FAERS Safety Report 19815946 (Version 1)
Quarter: 2021Q3

REPORT INFORMATION
  Report Type: Spontaneous
  Country: US (occurrence: US)
  Receive Date: 20210909
  Receipt Date: 20210909
  Transmission Date: 20211014
  Serious: Yes (Hospitalization)
  Sender: FDA-Public Use
  Company Number: NVSC2021US200604

PATIENT
  Age: 65 Year
  Sex: Male

DRUGS (10)
  1. CARVEDILOL. [Suspect]
     Active Substance: CARVEDILOL
     Indication: HYPERTENSION
     Dosage: 3 BOTTLES (2 DIFFERENT DOSES) (DOSE 1) (DAILY BASIS)
     Route: 065
  2. CARVEDILOL. [Suspect]
     Active Substance: CARVEDILOL
     Dosage: 3 BOTTLES (2 DIFFERENT DOSES) (DOSE 2) (DAILY BASIS)
     Route: 065
  3. HYDROCHLOROTHIAZIDE. [Suspect]
     Active Substance: HYDROCHLOROTHIAZIDE
     Dosage: UNK, (4 BOTTLES AT DIFFERENT DOSES) (DOSE 2) (DAILY BASIS)
     Route: 065
  4. HYDROCHLOROTHIAZIDE. [Suspect]
     Active Substance: HYDROCHLOROTHIAZIDE
     Dosage: UNK, (4 BOTTLES AT DIFFERENT DOSES) (DOSE 3) (DAILY BASIS)
     Route: 065
  5. BENAZEPRIL [Suspect]
     Active Substance: BENAZEPRIL HYDROCHLORIDE
     Indication: HYPERTENSION
     Dosage: UNK, (1 BOTTLE) (DAILY BASIS)
     Route: 065
  6. HYDRALAZINE [Suspect]
     Active Substance: HYDRALAZINE HYDROCHLORIDE
     Indication: HYPERTENSION
     Dosage: UNK, (1 BOTTLE) (IN COMBINATION WITH ISOSORBIDE DINITRATE) (DAILY BASIS)
     Route: 065
  7. HYDROCHLOROTHIAZIDE. [Suspect]
     Active Substance: HYDROCHLOROTHIAZIDE
     Dosage: UNK, (4 BOTTLES AT DIFFERENT DOSES) (DOSE 4) (DAILY BASIS)
     Route: 065
  8. AMLODIPINE [Suspect]
     Active Substance: AMLODIPINE BESYLATE
     Indication: HYPERTENSION
     Dosage: UNK, (1 BOTTLE) (DAILY BASIS)
     Route: 065
  9. ISOSORBIDE DINITRATE. [Suspect]
     Active Substance: ISOSORBIDE DINITRATE
     Indication: PRODUCT USED FOR UNKNOWN INDICATION
     Dosage: UNK, (1 BOTTLE) (IN COMBINATION WITH HYDRALAZINE) (DAILY BASIS)
     Route: 065
  10. HYDROCHLOROTHIAZIDE. [Suspect]
     Active Substance: HYDROCHLOROTHIAZIDE
     Indication: HYPERTENSION
     Dosage: UNK, (4 BOTTLES AT DIFFERENT DOSES) (DOSE 1) (DAILY BASIS)
     Route: 065

REACTIONS (2)
  - Hypotension [Unknown]
  - Altered state of consciousness [Unknown]
